FAERS Safety Report 7878826-1 (Version None)
Quarter: 2011Q4

REPORT INFORMATION
  Report Type: 
  Country: None (occurrence: None)
  Receive Date: 20111021
  Receipt Date: 20110919
  Transmission Date: 20120403
  Serious: No
  Sender: FDA-Public Use
  Company Number: US-006342

PATIENT
  Sex: Male

DRUGS (1)
  1. DEGARELIX [Suspect]
     Indication: PRODUCT USED FOR UNKNOWN INDICATION
     Dosage: (THERAPY DATES 3 MONTHS)

REACTIONS (2)
  - ALANINE AMINOTRANSFERASE INCREASED [None]
  - ASPARTATE AMINOTRANSFERASE INCREASED [None]
